FAERS Safety Report 7800130-8 (Version None)
Quarter: 2011Q4

REPORT INFORMATION
  Report Type: 
  Country: None (occurrence: None)
  Receive Date: 20111006
  Receipt Date: 20110929
  Transmission Date: 20120403
  Serious: Yes (Life-Threatening, Hospitalization)
  Sender: FDA-Public Use
  Company Number: FR-UCBSA-030077

PATIENT
  Age: 59 Year
  Sex: Female
  Weight: 60 kg

DRUGS (5)
  1. KEPPRA [Suspect]
     Route: 042
     Dates: start: 20110307, end: 20110301
  2. LASIX [Suspect]
     Indication: CARDIAC FAILURE
     Route: 042
     Dates: start: 20110319, end: 20110324
  3. KEPPRA [Suspect]
     Indication: PROPHYLAXIS
     Route: 042
     Dates: start: 20110318, end: 20110324
  4. LOVENOX [Suspect]
     Dosage: 0.4ML DAILY
     Dates: start: 20110311, end: 20110324
  5. ACETAMINOPHEN [Concomitant]
     Route: 042

REACTIONS (2)
  - AGRANULOCYTOSIS [None]
  - THROMBOCYTOPENIA [None]
